FAERS Safety Report 7207620-X (Version None)
Quarter: 2011Q1

REPORT INFORMATION
  Report Type: 
  Country: None (occurrence: None)
  Receive Date: 20110103
  Receipt Date: 20101229
  Transmission Date: 20110831
  Serious: Yes (Other)
  Sender: FDA-Public Use
  Company Number: US-PFIZER INC-2008077737

PATIENT
  Sex: Female
  Weight: 69 kg

DRUGS (5)
  1. ZETIA [Concomitant]
  2. COGENTIN [Concomitant]
  3. LOPID [Concomitant]
  4. CHANTIX [Suspect]
     Indication: SMOKING CESSATION THERAPY
  5. RISPERDAL [Concomitant]

REACTIONS (3)
  - CATARACT [None]
  - MIGRAINE [None]
  - NAUSEA [None]
